FAERS Safety Report 18950142 (Version 1)
Quarter: 2021Q1

REPORT INFORMATION
  Report Type: Spontaneous
  Country: US (occurrence: US)
  Receive Date: 20210228
  Receipt Date: 20210228
  Transmission Date: 20210420
  Serious: No
  Sender: FDA-Public Use
  Company Number: US-LUPIN PHARMACEUTICALS INC.-2021-02378

PATIENT
  Age: 66 Year
  Sex: Male

DRUGS (6)
  1. METFORMIN [Suspect]
     Active Substance: METFORMIN HYDROCHLORIDE
     Indication: TYPE 2 DIABETES MELLITUS
     Dosage: UNK
     Route: 065
  2. NPH INSULIN [Suspect]
     Active Substance: INSULIN BEEF
     Indication: TYPE 2 DIABETES MELLITUS
     Dosage: 20 UNIT, BID
     Route: 058
  3. REGULAR INSULIN NOVO NORDISK [Suspect]
     Active Substance: INSULIN HUMAN
     Indication: TYPE 2 DIABETES MELLITUS
     Dosage: 15 UNIT (15 UNITS BEFORE EACH MEAL)
     Route: 065
  4. COCONUT OIL [Suspect]
     Active Substance: COCONUT OIL
     Indication: DIABETES MELLITUS MANAGEMENT
     Dosage: 1000 MILLIGRAM, QD
     Route: 048
  5. NPH INSULIN [Suspect]
     Active Substance: INSULIN BEEF
     Dosage: 10 UNIT, BID
     Route: 058
  6. NPH INSULIN [Suspect]
     Active Substance: INSULIN BEEF
     Dosage: 15 UNIT, BID
     Route: 058

REACTIONS (1)
  - Hypoglycaemia [Unknown]
